FAERS Safety Report 9676088 (Version 1)
Quarter: 2013Q4

REPORT INFORMATION
  Report Type: Spontaneous
  Country: GB (occurrence: GB)
  Receive Date: 20131107
  Receipt Date: 20131107
  Transmission Date: 20140711
  Serious: Yes (Hospitalization)
  Sender: FDA-Public Use
  Company Number: GB-BAXTER-2013BAX043245

PATIENT
  Age: 27 Year
  Sex: 0
  Weight: 70.3 kg

DRUGS (9)
  1. KIOVIG 100 MG/ML SOLUTION FOR INFUSION [Suspect]
     Indication: COMBINED IMMUNODEFICIENCY
     Route: 042
     Dates: start: 20131016, end: 20131016
  2. KIOVIG 100 MG/ML SOLUTION FOR INFUSION [Suspect]
     Route: 042
     Dates: start: 20130917, end: 20130917
  3. CODEINE PHOSPHATE [Concomitant]
     Indication: ANALGESIC THERAPY
     Route: 048
     Dates: start: 20131014
  4. CODEINE PHOSPHATE [Concomitant]
     Indication: CAESAREAN SECTION
  5. DICLOFENAC [Concomitant]
     Indication: ANALGESIC THERAPY
     Route: 048
     Dates: start: 20131014
  6. DICLOFENAC [Concomitant]
     Indication: CAESAREAN SECTION
  7. FRAGMIN [Concomitant]
     Indication: THROMBOSIS PROPHYLAXIS
     Route: 058
     Dates: start: 20131014
  8. PARACETAMOL [Concomitant]
     Indication: ANALGESIC THERAPY
     Route: 048
     Dates: start: 20131014
  9. PARACETAMOL [Concomitant]
     Indication: CAESAREAN SECTION

REACTIONS (5)
  - Back pain [Recovering/Resolving]
  - Blood pressure increased [Recovering/Resolving]
  - Body temperature increased [Recovering/Resolving]
  - Chills [Recovering/Resolving]
  - Tachycardia [Recovering/Resolving]
